FAERS Safety Report 23837118 (Version 1)
Quarter: 2024Q2

REPORT INFORMATION
  Report Type: Spontaneous
  Country: US (occurrence: None)
  Receive Date: 20240508
  Receipt Date: 20240508
  Transmission Date: 20240716
  Serious: Yes (Disabling)
  Sender: FDA-Public Use
  Company Number: None

PATIENT
  Age: 71 Year
  Sex: Male
  Weight: 72.9 kg

DRUGS (1)
  1. CIPROFLOXACIN HYDROCHLORIDE [Suspect]
     Active Substance: CIPROFLOXACIN HYDROCHLORIDE
     Indication: Urinary tract infection
     Dosage: FREQUENCY : TWICE A DAY;?
     Route: 048

REACTIONS (11)
  - Toxicity to various agents [None]
  - Arthropathy [None]
  - Tendon rupture [None]
  - Myalgia [None]
  - Rash [None]
  - Photosensitivity reaction [None]
  - Vision blurred [None]
  - Inflammation [None]
  - Pruritus [None]
  - Hypoaesthesia [None]
  - Dyskinesia [None]

NARRATIVE: CASE EVENT DATE: 20240407
